FAERS Safety Report 7903566-X (Version None)
Quarter: 2011Q4

REPORT INFORMATION
  Report Type: 
  Country: None (occurrence: None)
  Receive Date: 20111109
  Receipt Date: 20111109
  Transmission Date: 20120403
  Serious: Yes (Hospitalization)
  Sender: FDA-Public Use
  Company Number: None

PATIENT
  Age: 68 Year
  Sex: Male
  Weight: 82.6 kg

DRUGS (11)
  1. HYDROCHLOROTHIAZIDE [Concomitant]
     Route: 048
  2. LEVOTHYROXINE SODIUM [Concomitant]
     Route: 048
  3. VITAMIN D [Concomitant]
  4. LISINOPRIL [Concomitant]
     Route: 048
  5. PRADAXA [Suspect]
     Indication: CEREBROVASCULAR ACCIDENT
     Dosage: 75 MG
     Route: 048
     Dates: start: 20110726, end: 20110804
  6. PRADAXA [Suspect]
     Indication: ATRIAL FIBRILLATION
     Dosage: 75 MG
     Route: 048
     Dates: start: 20110726, end: 20110804
  7. DABIGATRAN [Concomitant]
  8. CLONIDINE [Concomitant]
  9. METFORMIN HCL [Concomitant]
  10. HYDRALAZINE HCL [Concomitant]
  11. DILTIAZEM HCL [Concomitant]

REACTIONS (1)
  - EXTRADURAL HAEMATOMA [None]
